FAERS Safety Report 19858204 (Version 2)
Quarter: 2021Q3

REPORT INFORMATION
  Report Type: Report from Study
  Country: CN (occurrence: CN)
  Receive Date: 20210921
  Receipt Date: 20210923
  Transmission Date: 20211014
  Serious: Yes (Hospitalization)
  Sender: FDA-Public Use
  Company Number: CN-ROCHE-2903053

PATIENT
  Age: 71 Year
  Sex: Female
  Weight: 53 kg

DRUGS (7)
  1. ESOMEPRAZOLE MAGNESIUM. [Concomitant]
     Active Substance: ESOMEPRAZOLE MAGNESIUM
     Dates: start: 202106
  2. APREPITANT. [Concomitant]
     Active Substance: APREPITANT
     Dosage: 1 CAPSULE
     Route: 048
     Dates: start: 20210810
  3. LACTULOSE. [Concomitant]
     Active Substance: LACTULOSE
     Dosage: 2 OTHER
     Route: 048
     Dates: start: 20210811
  4. CAPECITABINE. [Suspect]
     Active Substance: CAPECITABINE
     Indication: OESOPHAGEAL ADENOCARCINOMA
     Dosage: TWICE A DAY, DAY 1 TO 14
     Route: 048
     Dates: start: 20210810
  5. ATEZOLIZUMAB. [Suspect]
     Active Substance: ATEZOLIZUMAB
     Indication: OESOPHAGEAL ADENOCARCINOMA
     Dosage: DATE OF MOST RECENT DOSE: 10/AUG/2021
     Route: 041
     Dates: start: 20210810
  6. TIRAGOLUMAB. [Suspect]
     Active Substance: TIRAGOLUMAB
     Indication: OESOPHAGEAL ADENOCARCINOMA
     Dosage: DATE OF MOST RECENT DOSE: 10/AUG/2021
     Route: 041
     Dates: start: 20210810
  7. OXALIPLATIN. [Suspect]
     Active Substance: OXALIPLATIN
     Indication: OESOPHAGEAL ADENOCARCINOMA
     Route: 042
     Dates: start: 20210810

REACTIONS (2)
  - Myocardial infarction [Recovered/Resolved]
  - Immune-mediated myocarditis [Recovered/Resolved]

NARRATIVE: CASE EVENT DATE: 20210830
